FAERS Safety Report 9740088 (Version 2)
Quarter: 2014Q2

REPORT INFORMATION
  Report Type: Spontaneous
  Country: FR (occurrence: FR)
  Receive Date: 20131209
  Receipt Date: 20140627
  Transmission Date: 20141212
  Serious: Yes (Hospitalization)
  Sender: FDA-Public Use
  Company Number: FR-GLAXOSMITHKLINE-B0950978A

PATIENT
  Age: 40 Year
  Sex: Male

DRUGS (8)
  1. ALKERAN [Suspect]
     Indication: STEM CELL TRANSPLANT
     Route: 042
     Dates: start: 20131009
  2. BLEOMYCINE [Suspect]
     Indication: LYMPHADENOPATHY MEDIASTINAL
     Route: 042
     Dates: start: 20130821, end: 20130918
  3. ENDOXAN [Suspect]
     Indication: LYMPHOMA
     Route: 042
     Dates: start: 20130814, end: 20130910
  4. ETOPOPHOS [Suspect]
     Indication: LYMPHADENOPATHY MEDIASTINAL
     Route: 042
     Dates: start: 20131005, end: 20131008
  5. CYTARABINE [Suspect]
     Indication: STEM CELL TRANSPLANT
     Route: 065
     Dates: start: 20131005, end: 20131008
  6. VINCRISTINE [Suspect]
     Indication: LYMPHOMA
     Route: 065
     Dates: start: 20130821, end: 20130914
  7. NATULAN [Suspect]
     Indication: LYMPHOMA
     Route: 065
     Dates: start: 20130910, end: 20130916
  8. BICNU [Suspect]
     Indication: LYMPHOMA
     Route: 042
     Dates: start: 20131004, end: 20131004

REACTIONS (1)
  - Organising pneumonia [Recovered/Resolved]
